FAERS Safety Report 17824979 (Version 1)
Quarter: 2020Q2

REPORT INFORMATION
  Report Type: Spontaneous
  Country: US (occurrence: US)
  Receive Date: 20200526
  Receipt Date: 20200526
  Transmission Date: 20200714
  Serious: Yes (Death)
  Sender: FDA-Public Use
  Company Number: None

PATIENT
  Age: 52 Year
  Sex: Male
  Weight: 80 kg

DRUGS (4)
  1. REMDESIVIR. [Suspect]
     Active Substance: REMDESIVIR
     Indication: COVID-19
     Route: 042
     Dates: start: 20200523, end: 20200523
  2. POTASSIUM CHLORIDE ER 40MEQ ORAL [Concomitant]
     Dates: start: 20200522, end: 20200522
  3. AZITHROMYCIN 250MG IV [Concomitant]
     Dates: start: 20200519, end: 20200523
  4. REMDESIVIR. [Suspect]
     Active Substance: REMDESIVIR
     Indication: COVID-19
     Dosage: ?          OTHER FREQUENCY:ONCE;?
     Route: 042
     Dates: start: 20200522, end: 20200522

REACTIONS (1)
  - Death [None]

NARRATIVE: CASE EVENT DATE: 20200523
